FAERS Safety Report 22040669 (Version 2)
Quarter: 2023Q2

REPORT INFORMATION
  Report Type: Spontaneous
  Country: SE (occurrence: SE)
  Receive Date: 20230227
  Receipt Date: 20230515
  Transmission Date: 20230721
  Serious: Yes (Hospitalization)
  Sender: FDA-Public Use
  Company Number: None

PATIENT
  Age: 66 Year
  Sex: Female
  Weight: 62 kg

DRUGS (5)
  1. ZOLEDRONIC ACID [Suspect]
     Active Substance: ZOLEDRONIC ACID
     Indication: Osteoporosis
     Dosage: 4MG/5MG 6.25 ML IN 100 ML NACL 1ST DROP OF 3, SCHEDULED ONCE/YEAR
     Dates: start: 20221116, end: 20221116
  2. IBUPROFEN [Concomitant]
     Active Substance: IBUPROFEN
     Indication: Product used for unknown indication
     Dosage: STRENGTH : IBUPROFEN DC 85 : 470.588 MG, IBUPROFEN : 400 MG
     Dates: start: 20221116, end: 20221116
  3. ACETAMINOPHEN\CODEINE PHOSPHATE [Concomitant]
     Active Substance: ACETAMINOPHEN\CODEINE PHOSPHATE
     Indication: Product used for unknown indication
     Dosage: 500 MG/30 MG 1-2 TABLETS MAX. 4 TIMES PER DAY , 500 MG/30 MG
     Dates: start: 20221116, end: 20221116
  4. CALCIUM CARBONATE\CHOLECALCIFEROL [Concomitant]
     Active Substance: CALCIUM CARBONATE\CHOLECALCIFEROL
     Indication: Product used for unknown indication
     Dosage: 2 DOSAGE FORMS DAILY; 1X2
     Dates: start: 20221103
  5. BETOLVEX [Concomitant]
     Indication: Product used for unknown indication

REACTIONS (11)
  - Dyspnoea [Recovered/Resolved]
  - Gait inability [Recovered/Resolved]
  - Headache [Recovering/Resolving]
  - Malaise [Recovering/Resolving]
  - Fear of death [Recovering/Resolving]
  - Pain [Recovering/Resolving]
  - Mobility decreased [Recovered/Resolved]
  - Dysstasia [Recovered/Resolved]
  - Musculoskeletal stiffness [Recovered/Resolved]
  - Muscle spasms [Recovered/Resolved]
  - Acute phase reaction [Recovering/Resolving]

NARRATIVE: CASE EVENT DATE: 20221116
